FAERS Safety Report 16474131 (Version 2)
Quarter: 2019Q3

REPORT INFORMATION
  Report Type: Spontaneous
  Country: US (occurrence: US)
  Receive Date: 20190625
  Receipt Date: 20190807
  Transmission Date: 20191004
  Serious: No
  Sender: FDA-Public Use
  Company Number: US-PFIZER INC-2019262461

PATIENT
  Age: 60 Year
  Sex: Female
  Weight: 54.88 kg

DRUGS (9)
  1. DAILY VITAMINS [Concomitant]
     Active Substance: VITAMINS
     Dosage: UNK
  2. MAGNESIUM [Concomitant]
     Active Substance: MAGNESIUM
     Dosage: UNK
  3. OMEPRAZOLE. [Concomitant]
     Active Substance: OMEPRAZOLE
     Dosage: UNK
     Dates: start: 2015
  4. XALKORI [Suspect]
     Active Substance: CRIZOTINIB
     Indication: LUNG NEOPLASM MALIGNANT
     Dosage: 250 MG, UNK
  5. XALKORI [Suspect]
     Active Substance: CRIZOTINIB
     Dosage: 200 MG, 2X/DAY (MORNING AND NIGHT)
     Dates: start: 20161221
  6. VYTORIN [Concomitant]
     Active Substance: EZETIMIBE\SIMVASTATIN
     Dosage: UNK
     Dates: start: 2015
  7. CALTRATE D [CALCIUM;COLECALCIFEROL] [Concomitant]
     Dosage: UNK
  8. VITAMIN D [COLECALCIFEROL] [Concomitant]
     Active Substance: CHOLECALCIFEROL
     Dosage: UNK
  9. FISH OIL OMEGA 3 [Concomitant]
     Active Substance: FISH OIL
     Dosage: UNK

REACTIONS (6)
  - Dysphagia [Recovered/Resolved]
  - Peripheral swelling [Recovered/Resolved]
  - Joint swelling [Recovered/Resolved]
  - Visual impairment [Recovered/Resolved]
  - Throat irritation [Recovered/Resolved]
  - Dehydration [Recovered/Resolved]

NARRATIVE: CASE EVENT DATE: 2016
